FAERS Safety Report 12492787 (Version 2)
Quarter: 2017Q2

REPORT INFORMATION
  Report Type: Report from Study
  Country: BR (occurrence: BR)
  Receive Date: 20160623
  Receipt Date: 20170502
  Transmission Date: 20170830
  Serious: Yes (Hospitalization, Other)
  Sender: FDA-Public Use
  Company Number: BR-ALEXION PHARMACEUTICALS INC-A201604574

PATIENT
  Age: 46 Year
  Sex: Female

DRUGS (2)
  1. SOLIRIS [Suspect]
     Active Substance: ECULIZUMAB
     Indication: PAROXYSMAL NOCTURNAL HAEMOGLOBINURIA
     Dosage: 300 MG, QW
     Route: 042
     Dates: start: 20160205, end: 20160303
  2. SOLIRIS [Suspect]
     Active Substance: ECULIZUMAB
     Dosage: 600 MG, EVERY 21 DAYS
     Route: 042
     Dates: start: 20160310

REACTIONS (6)
  - Headache [Unknown]
  - Pain [Unknown]
  - Migraine [Unknown]
  - Asthenia [Unknown]
  - Incorrect dose administered [Unknown]
  - Seizure [Unknown]

NARRATIVE: CASE EVENT DATE: 20160610
